FAERS Safety Report 21333307 (Version 1)
Quarter: 2022Q3

REPORT INFORMATION
  Report Type: Spontaneous
  Country: US (occurrence: US)
  Receive Date: 20220914
  Receipt Date: 20220914
  Transmission Date: 20221027
  Serious: Yes (Death, Other)
  Sender: FDA-Public Use
  Company Number: US-AMGEN-USASP2022155442

PATIENT
  Age: 57 Year
  Sex: Female

DRUGS (5)
  1. VECTIBIX [Suspect]
     Active Substance: PANITUMUMAB
     Indication: Ovarian cancer stage III
     Dosage: UNK, CYCLICAL
     Route: 065
  2. VECTIBIX [Suspect]
     Active Substance: PANITUMUMAB
     Indication: Off label use
  3. PACLITAXEL [Concomitant]
     Active Substance: PACLITAXEL
     Indication: Ovarian cancer stage III
     Dosage: UNK UNK, CYCLICAL
  4. CARBOPLATIN [Concomitant]
     Active Substance: CARBOPLATIN
     Indication: Ovarian cancer stage III
     Dosage: UNK UNK, CYCLICAL
  5. GEMCITABINE [Concomitant]
     Active Substance: GEMCITABINE
     Indication: Ovarian cancer stage III
     Dosage: UNK UNK, CYCLICAL

REACTIONS (3)
  - Sepsis [Fatal]
  - Calciphylaxis [Unknown]
  - Off label use [Unknown]
